FAERS Safety Report 6884719-9 (Version None)
Quarter: 2010Q3

REPORT INFORMATION
  Report Type: 
  Country: None (occurrence: None)
  Receive Date: 20100729
  Receipt Date: 20070815
  Transmission Date: 20110219
  Serious: Yes (Other)
  Sender: FDA-Public Use
  Company Number: US-PFIZER INC-2007067591

PATIENT
  Sex: Male
  Weight: 152 kg

DRUGS (2)
  1. CELEBREX [Suspect]
     Indication: OSTEOARTHRITIS
     Dates: start: 20040801
  2. BEXTRA [Suspect]
     Indication: OSTEOARTHRITIS
     Dates: start: 20041001

REACTIONS (4)
  - CHEST PAIN [None]
  - DEPRESSION [None]
  - HEADACHE [None]
  - MYOCARDIAL INFARCTION [None]
